FAERS Safety Report 4459862-4 (Version None)
Quarter: 2004Q3

REPORT INFORMATION
  Report Type: 
  Country: None (occurrence: None)
  Receive Date: 20040928
  Receipt Date: 20000724
  Transmission Date: 20050211
  Serious: No
  Sender: FDA-Public Use
  Company Number: US-GLAXOSMITHKLINE-A0124612A

PATIENT
  Age: 72 Year
  Sex: Female

DRUGS (7)
  1. SEREVENT [Suspect]
     Indication: ASTHMA
     Dosage: 2PUFF PER DAY
     Route: 055
  2. COMBIVENT [Suspect]
     Indication: ASTHMA
     Dosage: 2PUFF PER DAY
     Route: 055
  3. PREVACID [Concomitant]
     Dosage: 30MG PER DAY
     Route: 065
  4. LOPRESSOR [Concomitant]
     Dosage: 50MG PER DAY
     Route: 065
  5. TRANXENE [Concomitant]
     Dosage: 3.75MG FOUR TIMES PER DAY
     Route: 065
  6. BENTYL [Concomitant]
     Dosage: 20MG FOUR TIMES PER DAY
     Route: 065
  7. NEBULIZER [Concomitant]

REACTIONS (5)
  - COUGH [None]
  - GINGIVAL PAIN [None]
  - GLOSSODYNIA [None]
  - ORAL PAIN [None]
  - THROAT IRRITATION [None]
